FAERS Safety Report 4624226-7 (Version None)
Quarter: 2005Q1

REPORT INFORMATION
  Report Type: 
  Country: None (occurrence: None)
  Receive Date: 20050330
  Receipt Date: 20050330
  Transmission Date: 20050727
  Serious: Yes (Other)
  Sender: FDA-Public Use
  Company Number: None

PATIENT
  Sex: Female
  Weight: 45.3597 kg

DRUGS (7)
  1. CELEBREX [Suspect]
     Indication: ARTHRALGIA
     Dosage: 200 MG P.O. QD BID 1.5 TO 2 YEARS, 2003-JAN'05
     Route: 048
     Dates: start: 20030101, end: 20050101
  2. ACTONEL [Suspect]
     Indication: BONE DISORDER
     Dosage: 35 MG P.O. ONCE WEEKLY
     Route: 048
     Dates: start: 20041101, end: 20050213
  3. NEXIUM [Concomitant]
  4. M.V.I. [Concomitant]
  5. VITAMIN C [Concomitant]
  6. CALCIUM GLUCONATE [Concomitant]
  7. BETA CAROTENE [Concomitant]

REACTIONS (8)
  - BLOOD PRESSURE INCREASED [None]
  - CARDIAC FAILURE [None]
  - CARDIAC VALVE DISEASE [None]
  - CHEST PAIN [None]
  - DYSPNOEA [None]
  - HEART RATE INCREASED [None]
  - PAIN IN JAW [None]
  - TREATMENT NONCOMPLIANCE [None]
